FAERS Safety Report 12282773 (Version 2)
Quarter: 2017Q2

REPORT INFORMATION
  Report Type: Report from Study
  Country: US (occurrence: US)
  Receive Date: 20160419
  Receipt Date: 20170626
  Transmission Date: 20170830
  Serious: Yes (Hospitalization, Disabling, Other)
  Sender: FDA-Public Use
  Company Number: US-REGENERON PHARMACEUTICALS, INC.-2016-15672

PATIENT

DRUGS (2)
  1. EYLEA [Suspect]
     Active Substance: AFLIBERCEPT
     Indication: NEOVASCULAR AGE-RELATED MACULAR DEGENERATION
     Dosage: UNK, MONTHLY
     Route: 031
     Dates: start: 2012
  2. EYLEA [Suspect]
     Active Substance: AFLIBERCEPT
     Dosage: MONTHLY
     Route: 031
     Dates: start: 201705, end: 201705

REACTIONS (5)
  - Eye haemorrhage [Unknown]
  - Pain [Unknown]
  - Macular scar [Unknown]
  - Gastric cancer [Recovered/Resolved]
  - Blindness [Unknown]

NARRATIVE: CASE EVENT DATE: 20151201
